FAERS Safety Report 17986264 (Version 1)
Quarter: 2020Q3

REPORT INFORMATION
  Report Type: Other
  Country: BR (occurrence: BR)
  Receive Date: 20200707
  Receipt Date: 20200707
  Transmission Date: 20201103
  Serious: Yes (Other)
  Sender: FDA-Public Use
  Company Number: BR-DEXPHARM-20200553

PATIENT
  Age: 45 Year
  Sex: Male

DRUGS (1)
  1. LEVETIRACETAM NON DEXCEL PRODUCT [Suspect]
     Active Substance: LEVETIRACETAM
     Indication: SEIZURE
     Dosage: MAINTANANCE DOSE 1000MG 12/12H
     Route: 041

REACTIONS (1)
  - Renal failure [Recovered/Resolved]
